FAERS Safety Report 8612293-5 (Version None)
Quarter: 2012Q3

REPORT INFORMATION
  Report Type: 
  Country: None (occurrence: None)
  Receive Date: 20120810
  Receipt Date: 20120810
  Transmission Date: 20120928
  Serious: Yes (Hospitalization, Other)
  Sender: FDA-Public Use
  Company Number: None

PATIENT
  Age: 49 Year
  Sex: Male
  Weight: 115.6672 kg

DRUGS (2)
  1. SEROQUEL XR [Suspect]
     Indication: DEPRESSION
     Dosage: 1 PER DAY DAILY PO
     Route: 048
     Dates: start: 20101115, end: 20120807
  2. SEROQUEL XR [Suspect]
     Indication: ANXIETY
     Dosage: 1 PER DAY DAILY PO
     Route: 048
     Dates: start: 20101115, end: 20120807

REACTIONS (8)
  - AGITATION [None]
  - CHEST PAIN [None]
  - INSOMNIA [None]
  - DIZZINESS [None]
  - DEPRESSION [None]
  - ABDOMINAL PAIN UPPER [None]
  - FEELING ABNORMAL [None]
  - ANXIETY [None]
